FAERS Safety Report 5678528-6 (Version None)
Quarter: 2008Q1

REPORT INFORMATION
  Report Type: 
  Country: None (occurrence: None)
  Receive Date: 20080325
  Receipt Date: 20080313
  Transmission Date: 20080703
  Serious: Yes (Other)
  Sender: FDA-Public Use
  Company Number: HQWYE206417JUL04

PATIENT
  Sex: Female
  Weight: 97.61 kg

DRUGS (4)
  1. PREMARIN [Suspect]
     Indication: OESTROGEN REPLACEMENT THERAPY
     Dosage: UNKNOWN
     Route: 048
     Dates: start: 19900101, end: 20030101
  2. PREMPRO [Suspect]
  3. CYCRIN [Suspect]
  4. PROVERA [Suspect]
     Indication: HORMONE REPLACEMENT THERAPY
     Dosage: UNKNOWN
     Route: 048
     Dates: start: 19900101, end: 20030101

REACTIONS (1)
  - BREAST CANCER METASTATIC [None]
